FAERS Safety Report 14541284 (Version 1)
Quarter: 2018Q1

REPORT INFORMATION
  Report Type: Spontaneous
  Country: ES (occurrence: ES)
  Receive Date: 20180216
  Receipt Date: 20180216
  Transmission Date: 20180509
  Serious: Yes (Life-Threatening, Hospitalization, Other)
  Sender: FDA-Public Use
  Company Number: ES-OTSUKA-DJ20103024

PATIENT
  Age: 27 Year
  Sex: Male

DRUGS (4)
  1. ABILIFY [Suspect]
     Active Substance: ARIPIPRAZOLE
     Indication: BIPOLAR I DISORDER
     Dosage: 7.5 MG, UNK
     Route: 048
     Dates: start: 20090818, end: 20090818
  2. SEROQUEL [Suspect]
     Active Substance: QUETIAPINE FUMARATE
     Indication: BIPOLAR I DISORDER
     Dosage: SEROQUEL 300 MG.FILM COATED TABS 60 TABS
     Route: 048
     Dates: end: 20090818
  3. TOPAMAX [Suspect]
     Active Substance: TOPIRAMATE
     Indication: BIPOLAR I DISORDER
     Dosage: UNK
     Route: 048
     Dates: start: 200711, end: 20090818
  4. PERFENAZINE [Suspect]
     Active Substance: PERPHENAZINE
     Indication: BIPOLAR I DISORDER
     Dosage: 24 MG, UNK
     Route: 048
     Dates: start: 20090403, end: 20090818

REACTIONS (1)
  - Hyperthermia malignant [Recovered/Resolved with Sequelae]

NARRATIVE: CASE EVENT DATE: 20090818
